FAERS Safety Report 19635614 (Version 1)
Quarter: 2021Q3

REPORT INFORMATION
  Report Type: Spontaneous
  Country: US (occurrence: US)
  Receive Date: 20210730
  Receipt Date: 20210730
  Transmission Date: 20211014
  Serious: Yes (Death, Hospitalization)
  Sender: FDA-Public Use
  Company Number: NVSC2021US171904

PATIENT
  Age: 58 Year
  Sex: Female

DRUGS (6)
  1. RANITIDINE. [Suspect]
     Active Substance: RANITIDINE
     Indication: ABDOMINAL DISCOMFORT
  2. RANITIDINE. [Suspect]
     Active Substance: RANITIDINE
     Indication: ABDOMINAL DISCOMFORT
  3. RANITIDINE. [Suspect]
     Active Substance: RANITIDINE
     Indication: DYSPEPSIA
     Dosage: 300 MG, QD
     Route: 048
     Dates: start: 199901, end: 201911
  4. RANITIDINE. [Suspect]
     Active Substance: RANITIDINE
     Indication: VOMITING
  5. RANITIDINE. [Suspect]
     Active Substance: RANITIDINE
     Indication: DYSPEPSIA
     Dosage: 300 MG, QD
     Route: 048
     Dates: start: 199901, end: 201911
  6. RANITIDINE. [Suspect]
     Active Substance: RANITIDINE
     Indication: VOMITING

REACTIONS (2)
  - Brain neoplasm malignant [Fatal]
  - Bladder cancer [Fatal]

NARRATIVE: CASE EVENT DATE: 20160101
